FAERS Safety Report 12702965 (Version 2)
Quarter: 2016Q3

REPORT INFORMATION
  Report Type: Spontaneous
  Country: CN (occurrence: CN)
  Receive Date: 20160831
  Receipt Date: 20160915
  Transmission Date: 20161109
  Serious: Yes (Hospitalization, Other)
  Sender: FDA-Public Use
  Company Number: CN-GLAXOSMITHKLINE-CN2016GSK124308

PATIENT
  Age: 55 Year
  Sex: Male
  Weight: 58 kg

DRUGS (9)
  1. HEPTODIN [Suspect]
     Active Substance: LAMIVUDINE
     Indication: HEPATITIS B
     Dosage: 300 MG, QD
     Route: 048
     Dates: start: 2010, end: 2014
  2. HEPTODIN [Suspect]
     Active Substance: LAMIVUDINE
     Dosage: 1 DF, QD
  3. CEPHALOSPORIN [Suspect]
     Active Substance: UNSPECIFIED INGREDIENT
     Indication: NASOPHARYNGITIS
     Dosage: UNK
     Dates: start: 20160905
  4. TACROLIMUS. [Suspect]
     Active Substance: TACROLIMUS
     Indication: TRANSPLANT REJECTION
     Dosage: UNK
     Route: 048
     Dates: start: 2013
  5. SIROLIMUS. [Suspect]
     Active Substance: SIROLIMUS
     Indication: TRANSPLANT REJECTION
     Dosage: UNK
     Route: 048
     Dates: start: 2013
  6. CONTAC NT (CHLORPHENIR+DEXTROMETHORPHAN+PARACETAMOL+PSEUDOEPHEDRINE) [Suspect]
     Active Substance: ACETAMINOPHEN\CHLORPHENIRAMINE MALEATE\DEXTROMETHORPHAN\PSEUDOEPHEDRINE
     Indication: NASOPHARYNGITIS
     Dosage: 1 DF, QD
     Dates: start: 20160905
  7. LAMIVUDINE. [Suspect]
     Active Substance: LAMIVUDINE
     Indication: HEPATITIS B
     Dosage: UNK
     Dates: start: 2014, end: 2014
  8. CELLCEPT [Suspect]
     Active Substance: MYCOPHENOLATE MOFETIL\MYCOPHENOLATE MOFETIL HYDROCHLORIDE
     Indication: TRANSPLANT REJECTION
     Dosage: UNK
     Route: 048
     Dates: start: 2013
  9. YIN QIAO [Suspect]
     Active Substance: HERBALS
     Indication: NASOPHARYNGITIS
     Dosage: UNK
     Dates: start: 20160905

REACTIONS (7)
  - Blood creatinine increased [Unknown]
  - Pyrexia [Recovered/Resolved]
  - Hepatitis B DNA increased [Recovered/Resolved]
  - Renal transplant [Recovered/Resolved]
  - Nasopharyngitis [Recovering/Resolving]
  - Product availability issue [Unknown]
  - Renal impairment [Unknown]

NARRATIVE: CASE EVENT DATE: 2010
